FAERS Safety Report 6954581-4 (Version None)
Quarter: 2010Q3

REPORT INFORMATION
  Report Type: 
  Country: None (occurrence: None)
  Receive Date: 20100829
  Receipt Date: 20100720
  Transmission Date: 20110219
  Serious: No
  Sender: FDA-Public Use
  Company Number: US-ABBOTT-10P-163-0660121-00

PATIENT
  Sex: Female
  Weight: 77.18 kg

DRUGS (8)
  1. NIASPAN [Suspect]
     Indication: CORONARY ARTERY OCCLUSION
     Dates: start: 20100523, end: 20100714
  2. NIASPAN [Suspect]
     Dates: start: 20100715, end: 20100724
  3. NIASPAN [Suspect]
     Dates: start: 20100725
  4. IMMUR [Concomitant]
     Indication: PRODUCT USED FOR UNKNOWN INDICATION
  5. CARDIZEM [Concomitant]
     Indication: HYPERTENSION
  6. CRESTOR [Concomitant]
     Indication: BLOOD TRIGLYCERIDES INCREASED
  7. CRESTOR [Concomitant]
     Indication: BLOOD CHOLESTEROL INCREASED
  8. ATENOLOL [Concomitant]
     Indication: HYPERTENSION

REACTIONS (4)
  - ABDOMINAL PAIN UPPER [None]
  - DIARRHOEA [None]
  - PALPITATIONS [None]
  - SKIN BURNING SENSATION [None]
